FAERS Safety Report 5892911-5 (Version None)
Quarter: 2008Q3

REPORT INFORMATION
  Report Type: 
  Country: None (occurrence: None)
  Receive Date: 20080922
  Receipt Date: 20080922
  Transmission Date: 20090109
  Serious: No
  Sender: FDA-Public Use
  Company Number: None

PATIENT
  Sex: Male
  Weight: 88.4514 kg

DRUGS (1)
  1. RESTASIS [Suspect]
     Indication: DRY EYE
     Dosage: 1 OR 2 DROPS TWICE DAILY OPHTHALMIC
     Route: 047
     Dates: start: 20080607, end: 20080915

REACTIONS (4)
  - OROPHARYNGEAL PAIN [None]
  - PAIN [None]
  - POSTNASAL DRIP [None]
  - SLEEP DISORDER [None]
